FAERS Safety Report 17911104 (Version 2)
Quarter: 2020Q3

REPORT INFORMATION
  Report Type: Other
  Country: US (occurrence: US)
  Receive Date: 20200618
  Receipt Date: 20200709
  Transmission Date: 20201103
  Serious: Yes (Hospitalization, Other)
  Sender: FDA-Public Use
  Company Number: US-AMAG PHARMACEUTICALS, INC.-AMAG202002022

PATIENT
  Age: 26 Year
  Sex: Female

DRUGS (9)
  1. ALBUTEROL. [Concomitant]
     Active Substance: ALBUTEROL
     Indication: ASTHMA
  2. LOTRISONE [Concomitant]
     Active Substance: BETAMETHASONE DIPROPIONATE\CLOTRIMAZOLE
     Indication: PRODUCT USED FOR UNKNOWN INDICATION
     Route: 061
  3. CHOLECALCIFEROL [Concomitant]
     Active Substance: CHOLECALCIFEROL
     Indication: VITAMIN D DEFICIENCY
     Route: 048
  4. FERUSOL [Concomitant]
     Indication: PRODUCT USED FOR UNKNOWN INDICATION
     Route: 048
  5. MAKENA [Suspect]
     Active Substance: HYDROXYPROGESTERONE CAPROATE
     Indication: PREMATURE DELIVERY
     Dosage: 250 MG/ML, WEEKLY
     Route: 058
     Dates: start: 20200311, end: 20200522
  6. ALBUTEROL. [Concomitant]
     Active Substance: ALBUTEROL
     Indication: WHEEZING
  7. CLEOCIN [Concomitant]
     Active Substance: CLINDAMYCIN PHOSPHATE
     Indication: PRODUCT USED FOR UNKNOWN INDICATION
     Route: 048
  8. FLUTICASONE. [Concomitant]
     Active Substance: FLUTICASONE
     Indication: ASTHMA
  9. PRENATAL VITAMINS [Concomitant]
     Active Substance: VITAMINS
     Indication: PREGNANCY
     Route: 048

REACTIONS (6)
  - Premature delivery [Recovered/Resolved]
  - Preterm premature rupture of membranes [Recovered/Resolved]
  - Oxygen saturation decreased [Recovered/Resolved]
  - Haemoptysis [Recovered/Resolved]
  - Breech presentation [Recovered/Resolved]
  - Cervical incompetence [Unknown]

NARRATIVE: CASE EVENT DATE: 20200402
